FAERS Safety Report 9383281 (Version 1)
Quarter: 2013Q3

REPORT INFORMATION
  Report Type: Spontaneous
  Country: US (occurrence: US)
  Receive Date: 20130704
  Receipt Date: 20130704
  Transmission Date: 20140515
  Serious: No
  Sender: FDA-Public Use
  Company Number: US-BIOGENIDEC-2013BI059585

PATIENT
  Age: 59 Year
  Sex: Female

DRUGS (1)
  1. AVONEX [Suspect]
     Indication: MULTIPLE SCLEROSIS
     Route: 030
     Dates: start: 20021119

REACTIONS (5)
  - Vertigo [Recovered/Resolved]
  - Sinusitis [Recovered/Resolved]
  - Labyrinthitis [Recovered/Resolved]
  - Rhinorrhoea [Recovered/Resolved]
  - Injection site pain [Recovered/Resolved]
